FAERS Safety Report 24814328 (Version 2)
Quarter: 2025Q1

REPORT INFORMATION
  Report Type: Spontaneous
  Country: US (occurrence: US)
  Receive Date: 20250107
  Receipt Date: 20250128
  Transmission Date: 20250409
  Serious: No
  Sender: PFIZER
  Company Number: US-PFIZER INC-202500000867

PATIENT
  Age: 58 Year
  Sex: Male
  Weight: 104.31 kg

DRUGS (1)
  1. PAXLOVID [Suspect]
     Active Substance: NIRMATRELVIR\RITONAVIR
     Indication: COVID-19 treatment
     Dosage: 3 DF, 2X/DAY
     Route: 048
     Dates: start: 20241223, end: 20241228

REACTIONS (1)
  - Symptom recurrence [Recovered/Resolved]

NARRATIVE: CASE EVENT DATE: 20250101
